FAERS Safety Report 7623100-1 (Version None)
Quarter: 2011Q3

REPORT INFORMATION
  Report Type: 
  Country: None (occurrence: None)
  Receive Date: 20110720
  Receipt Date: 20110715
  Transmission Date: 20111222
  Serious: Yes (Hospitalization)
  Sender: FDA-Public Use
  Company Number: US-B.I. PHARMACEUTICALS,INC./RIDGEFIELD-2011-BP-17813BP

PATIENT
  Age: 75 Year
  Sex: Male

DRUGS (4)
  1. TOPROL-XL [Concomitant]
  2. VALIUM [Concomitant]
  3. LASIX [Concomitant]
  4. PRADAXA [Suspect]
     Indication: ATRIAL FIBRILLATION
     Dosage: 300 MG
     Route: 048
     Dates: start: 20110415

REACTIONS (2)
  - ULCER HAEMORRHAGE [None]
  - MELAENA [None]
